FAERS Safety Report 4849320-7 (Version None)
Quarter: 2005Q4

REPORT INFORMATION
  Report Type: 
  Country: None (occurrence: None)
  Receive Date: 20051207
  Receipt Date: 20051128
  Transmission Date: 20060501
  Serious: Yes (Other)
  Sender: FDA-Public Use
  Company Number: 2005-BP-20736RO

PATIENT
  Age: 51 Year
  Sex: Female
  Weight: 52.2 kg

DRUGS (3)
  1. METHADONE HCL [Suspect]
     Indication: PAIN
     Dosage: UP TO 2.5 TABLETS (12.5 MG) DAILY
     Dates: start: 20050301
  2. ELAVIL [Concomitant]
  3. BIRTH CONTROL PILLS (OTHER HORMONES) [Concomitant]

REACTIONS (2)
  - EOSINOPHIL COUNT INCREASED [None]
  - TRANSIENT ISCHAEMIC ATTACK [None]
